FAERS Safety Report 20512393 (Version 1)
Quarter: 2022Q1

REPORT INFORMATION
  Report Type: Spontaneous
  Country: US (occurrence: None)
  Receive Date: 20220223
  Receipt Date: 20220223
  Transmission Date: 20220424
  Serious: Yes (Disabling)
  Sender: FDA-Public Use
  Company Number: None

PATIENT
  Age: 75 Year
  Sex: Female
  Weight: 224 kg

DRUGS (14)
  1. TIZANIDINE HYDROCHLORIDE [Suspect]
     Active Substance: TIZANIDINE HYDROCHLORIDE
     Indication: Myalgia
     Dosage: OTHER QUANTITY : 1 TABLET(S);?FREQUENCY : TWICE A DAY;?
     Route: 048
     Dates: start: 20211115, end: 20220223
  2. TIZANIDINE HYDROCHLORIDE [Suspect]
     Active Substance: TIZANIDINE HYDROCHLORIDE
     Indication: Muscle spasms
  3. LANSOPRAZOLE [Concomitant]
     Active Substance: LANSOPRAZOLE
  4. ESCITALOPRAM [Concomitant]
     Active Substance: ESCITALOPRAM OXALATE
  5. LYRICA [Concomitant]
     Active Substance: PREGABALIN
  6. TELMISARTAN [Concomitant]
     Active Substance: TELMISARTAN
  7. MEMANTINE [Concomitant]
     Active Substance: MEMANTINE
  8. ALBUTERNOL SULFATE [Concomitant]
  9. QUETIAPINE FUMARATE [Concomitant]
     Active Substance: QUETIAPINE FUMARATE
  10. METHADONE [Concomitant]
     Active Substance: METHADONE HYDROCHLORIDE
  11. CENTRUM SILVER MULTIVITAMEN FOR WOMEN [Concomitant]
  12. ASPIRIN BAYER LOW DOSE [Concomitant]
  13. BIOTIN [Concomitant]
     Active Substance: BIOTIN
  14. VITAMIN C [Concomitant]
     Active Substance: ASCORBIC ACID

REACTIONS (12)
  - Muscle tightness [None]
  - Myalgia [None]
  - Spinal osteoarthritis [None]
  - Hyperkeratosis [None]
  - Hyperkeratosis [None]
  - Skin disorder [None]
  - Pruritus [None]
  - Skin exfoliation [None]
  - Dry skin [None]
  - Erythema [None]
  - Rash [None]
  - Drug eruption [None]

NARRATIVE: CASE EVENT DATE: 20220115
